FAERS Safety Report 5970107-6 (Version None)
Quarter: 2008Q4

REPORT INFORMATION
  Report Type: 
  Country: None (occurrence: None)
  Receive Date: 20081126
  Receipt Date: 20081118
  Transmission Date: 20090506
  Serious: Yes (Hospitalization)
  Sender: FDA-Public Use
  Company Number: US-PFIZER INC-2008097891

PATIENT
  Sex: Male
  Weight: 80 kg

DRUGS (5)
  1. ZYVOX [Suspect]
     Indication: ENTEROCOCCAL SEPSIS
     Dates: start: 20081108, end: 20081117
  2. DORIPENEM [Concomitant]
  3. AMIODARONE HCL [Concomitant]
  4. METRONIDAZOLE [Concomitant]
  5. VANCOMYCIN [Concomitant]

REACTIONS (7)
  - DYSTONIA [None]
  - MYDRIASIS [None]
  - PUPILS UNEQUAL [None]
  - RETINOPATHY [None]
  - SPEECH DISORDER [None]
  - SUDDEN VISUAL LOSS [None]
  - VISUAL PATHWAY DISORDER [None]
